FAERS Safety Report 12404301 (Version 1)
Quarter: 2016Q2

REPORT INFORMATION
  Report Type: Spontaneous
  Country: FR (occurrence: FR)
  Receive Date: 20160525
  Receipt Date: 20160525
  Transmission Date: 20160815
  Serious: Yes (Hospitalization)
  Sender: FDA-Public Use
  Company Number: FR-PFIZER INC-2016265582

PATIENT
  Age: 54 Year
  Sex: Female

DRUGS (9)
  1. HEROIN [Concomitant]
     Active Substance: DIACETYLMORPHINE
     Dosage: UNK
  2. EFFEXOR [Suspect]
     Active Substance: VENLAFAXINE HYDROCHLORIDE
     Dosage: 2250 MG, SINGLE (30 DOSAGE FORMS ONCE ONLY)
     Route: 048
     Dates: start: 20160410, end: 20160410
  3. ZOPICLONE [Suspect]
     Active Substance: ZOPICLONE
     Dosage: 14 DF, SINGLE
     Route: 048
     Dates: start: 20160410, end: 20160410
  4. COCAINE [Concomitant]
     Active Substance: COCAINE
     Dosage: 2 G, DAILY
     Dates: start: 201511
  5. SERESTA [Suspect]
     Active Substance: OXAZEPAM
     Dosage: 1000 MG, SINGLE (20 DOSAGE FORMS)
     Route: 048
     Dates: start: 20160410, end: 20160410
  6. METOCLOPRAMIDE. [Suspect]
     Active Substance: METOCLOPRAMIDE
     Dosage: 10 DF, SINGLE
     Route: 048
     Dates: start: 20160410, end: 20160410
  7. EPITOMAX [Concomitant]
     Active Substance: TOPIRAMATE
     Dosage: UNK
  8. METFORMINE [Concomitant]
     Active Substance: METFORMIN HYDROCHLORIDE
     Dosage: UNK
  9. AVLOCARDYL /00030001/ [Concomitant]
     Active Substance: PROPRANOLOL HYDROCHLORIDE
     Dosage: UNK

REACTIONS (6)
  - Tachypnoea [Recovered/Resolved]
  - Intentional self-injury [Unknown]
  - Oxygen saturation decreased [Recovered/Resolved]
  - Intentional overdose [Unknown]
  - Somnolence [Recovered/Resolved]
  - Toxicity to various agents [Unknown]

NARRATIVE: CASE EVENT DATE: 20160410
